FAERS Safety Report 18321309 (Version 1)
Quarter: 2020Q3

REPORT INFORMATION
  Report Type: Spontaneous
  Country: FR (occurrence: FR)
  Receive Date: 20200928
  Receipt Date: 20200928
  Transmission Date: 20201103
  Serious: Yes (Life-Threatening, Other)
  Sender: FDA-Public Use
  Company Number: FR-MYLANLABS-2020M1080896

PATIENT
  Age: 62 Year
  Sex: Female
  Weight: 93.5 kg

DRUGS (5)
  1. DEPAMIDE [Suspect]
     Active Substance: VALPROMIDE
     Indication: PRODUCT USED FOR UNKNOWN INDICATION
     Dosage: GASTRO?RESISTANT FILM?COATED TABLETS
     Route: 048
     Dates: start: 20200802, end: 20200802
  2. MIANSERIN [Suspect]
     Active Substance: MIANSERIN
     Indication: PRODUCT USED FOR UNKNOWN INDICATION
     Dosage: 30 DOSAGE FORM, TOTAL
     Route: 048
     Dates: start: 20200802, end: 20200802
  3. LORMETAZEPAM [Suspect]
     Active Substance: LORMETAZEPAM
     Indication: PRODUCT USED FOR UNKNOWN INDICATION
     Dosage: 30 DOSAGE FORM, TOTAL
     Route: 048
     Dates: start: 20200802, end: 20200802
  4. HYDROXYZINE [Suspect]
     Active Substance: HYDROXYZINE HYDROCHLORIDE
     Indication: PRODUCT USED FOR UNKNOWN INDICATION
     Dosage: 30 DOSAGE FORM, TOTAL
     Route: 048
     Dates: start: 20200802, end: 20200802
  5. LORAZEPAM. [Suspect]
     Active Substance: LORAZEPAM
     Indication: PRODUCT USED FOR UNKNOWN INDICATION
     Dosage: 30 DOSAGE FORM, TOTAL
     Route: 048
     Dates: start: 20200802, end: 20200802

REACTIONS (2)
  - Coma [Recovered/Resolved]
  - Poisoning deliberate [Unknown]

NARRATIVE: CASE EVENT DATE: 20200802
